FAERS Safety Report 5369547-8 (Version None)
Quarter: 2007Q2

REPORT INFORMATION
  Report Type: 
  Country: None (occurrence: None)
  Receive Date: 20070621
  Receipt Date: 20070608
  Transmission Date: 20071010
  Serious: Yes (Other)
  Sender: FDA-Public Use
  Company Number: A-NJ2007-16075

PATIENT
  Age: 49 Year
  Sex: Female

DRUGS (12)
  1. TRACLEER [Suspect]
     Indication: PULMONARY HYPERTENSION
     Dosage: 62.5 MG, BID, ORAL
     Route: 048
     Dates: start: 20070301, end: 20070401
  2. VENTAVIS [Concomitant]
  3. ASTELIN [Concomitant]
  4. CILOSTAZOL [Concomitant]
  5. LISINOPRIL [Concomitant]
  6. SILDENAFIL CITRATE [Concomitant]
  7. PREDNISONE TAB [Concomitant]
  8. METFORMIN (METFORMIN) [Concomitant]
  9. ZOCOR [Concomitant]
  10. SINGULAIR [Concomitant]
  11. ADVAIR (SALMETEROL XINAFOATE, FLUTICASONE PROPIONATE) [Concomitant]
  12. PROTONIX [Concomitant]

REACTIONS (2)
  - NAUSEA [None]
  - VOMITING [None]
